FAERS Safety Report 7607792-9 (Version None)
Quarter: 2011Q3

REPORT INFORMATION
  Report Type: 
  Country: None (occurrence: None)
  Receive Date: 20110714
  Receipt Date: 20110705
  Transmission Date: 20111222
  Serious: Yes (Hospitalization)
  Sender: FDA-Public Use
  Company Number: DE-BRISTOL-MYERS SQUIBB COMPANY-15875560

PATIENT
  Age: 67 Year
  Sex: Female

DRUGS (7)
  1. METHYLPREDNISOLONE [Concomitant]
  2. AMOXICILLIN [Suspect]
     Indication: URINARY TRACT INFECTION
  3. CALCIUM CARBONATE [Concomitant]
  4. PULMICORT [Concomitant]
  5. SPIROPENT [Concomitant]
     Dosage: 1DF: 0.02 UNITS NOS.
  6. ISOPTIN [Concomitant]
     Dosage: 1DF: 80 UNITS NOS.
  7. LEVOTHYROXINE SODIUM [Concomitant]
     Dosage: 1DF: 100 UNITS NOS.

REACTIONS (1)
  - TRAUMATIC HAEMORRHAGE [None]
